FAERS Safety Report 9002699 (Version 1)
Quarter: 2013Q1

REPORT INFORMATION
  Report Type: Spontaneous
  Country: US (occurrence: US)
  Receive Date: 20130107
  Receipt Date: 20130107
  Transmission Date: 20140127
  Serious: No
  Sender: FDA-Public Use
  Company Number: US-GLAXOSMITHKLINE-A0976497A

PATIENT
  Age: 30 Year
  Sex: Female
  Weight: 72.64 kg

DRUGS (5)
  1. BENLYSTA [Suspect]
     Indication: SYSTEMIC LUPUS ERYTHEMATOSUS
     Route: 042
     Dates: start: 20120102
  2. PLAQUENIL [Concomitant]
     Dosage: 200MG PER DAY
  3. NAPROXEN [Concomitant]
     Dosage: 500MG PER DAY
  4. CELEXA [Concomitant]
     Dosage: 40MG PER DAY
  5. ASPIRIN [Concomitant]

REACTIONS (8)
  - Night sweats [Not Recovered/Not Resolved]
  - Hunger [Not Recovered/Not Resolved]
  - Insomnia [Not Recovered/Not Resolved]
  - Anxiety [Not Recovered/Not Resolved]
  - Irritability [Unknown]
  - Ulcer [Unknown]
  - Pruritus [Unknown]
  - Amenorrhoea [Unknown]
